FAERS Safety Report 6708128-8 (Version None)
Quarter: 2010Q2

REPORT INFORMATION
  Report Type: 
  Country: None (occurrence: None)
  Receive Date: 20100503
  Receipt Date: 20090505
  Transmission Date: 20101027
  Serious: No
  Sender: FDA-Public Use
  Company Number: US-ASTRAZENECA-2007UW26797

PATIENT
  Age: 81 Year
  Sex: Female
  Weight: 56.7 kg

DRUGS (5)
  1. NEXIUM [Suspect]
     Indication: GASTROOESOPHAGEAL REFLUX DISEASE
     Route: 048
  2. NEXIUM [Suspect]
     Route: 048
  3. GLUCOPHAGE [Concomitant]
  4. TENORMIN [Concomitant]
  5. EVISTA [Concomitant]

REACTIONS (8)
  - CONSTIPATION [None]
  - DIZZINESS [None]
  - DRUG INEFFECTIVE [None]
  - DYSPNOEA [None]
  - GLOSSODYNIA [None]
  - RETCHING [None]
  - THROAT IRRITATION [None]
  - WEIGHT DECREASED [None]
